FAERS Safety Report 5857177-0 (Version None)
Quarter: 2008Q3

REPORT INFORMATION
  Report Type: 
  Country: None (occurrence: None)
  Receive Date: 20080825
  Receipt Date: 20080819
  Transmission Date: 20090109
  Serious: Yes (Other)
  Sender: FDA-Public Use
  Company Number: PHHY2008JP04881

PATIENT
  Sex: Female

DRUGS (1)
  1. SANDOSTATIN LAR [Suspect]
     Indication: ACROMEGALY
     Dosage: 20 MG/DAY
     Route: 030
     Dates: end: 20080301

REACTIONS (2)
  - CONCOMITANT DISEASE AGGRAVATED [None]
  - DIABETIC NEPHROPATHY [None]
